FAERS Safety Report 8708999 (Version 2)
Quarter: 2012Q4

REPORT INFORMATION
  Report Type: 
  Country: IT (occurrence: IT)
  Receive Date: 20120806
  Receipt Date: 20120904
  Transmission Date: 20130627
  Serious: Yes (Hospitalization)
  Sender: FDA-Public Use
  Company Number: IT-PFIZER INC-2012188098

PATIENT
  Age: 57 Year
  Sex: Male

DRUGS (1)
  1. XANAX [Suspect]
     Dosage: 6 tablets (0.25 mg)
     Route: 048
     Dates: start: 20120723, end: 20120723

REACTIONS (3)
  - Intentional overdose [Recovered/Resolved]
  - Bradyphrenia [Recovered/Resolved]
  - Sopor [Recovered/Resolved]
